FAERS Safety Report 19269159 (Version 1)
Quarter: 2021Q2

REPORT INFORMATION
  Report Type: Spontaneous
  Country: US (occurrence: US)
  Receive Date: 20210518
  Receipt Date: 20210518
  Transmission Date: 20210717
  Serious: Yes (Hospitalization)
  Sender: FDA-Public Use
  Company Number: None

PATIENT
  Age: 81 Year
  Sex: Male

DRUGS (1)
  1. ETOPOSIDE 50MG MYLAN [Suspect]
     Active Substance: ETOPOSIDE
     Route: 048
     Dates: start: 20210414

REACTIONS (3)
  - White blood cell count decreased [None]
  - Hypotension [None]
  - Pyrexia [None]

NARRATIVE: CASE EVENT DATE: 20210503
